FAERS Safety Report 22089891 (Version 3)
Quarter: 2023Q4

REPORT INFORMATION
  Report Type: Report from Study
  Country: US (occurrence: US)
  Receive Date: 20230313
  Receipt Date: 20231208
  Transmission Date: 20240109
  Serious: Yes (Other)
  Sender: FDA-Public Use
  Company Number: US-TAKEDA-2023TUS005332

PATIENT
  Age: 65 Year
  Sex: Male

DRUGS (2)
  1. VEDOLIZUMAB [Suspect]
     Active Substance: VEDOLIZUMAB
     Indication: Product used for unknown indication
     Dosage: 300 MILLIGRAM
     Route: 042
  2. VEDOLIZUMAB [Suspect]
     Active Substance: VEDOLIZUMAB
     Dosage: 300 MILLIGRAM, Q6WEEKS
     Route: 042

REACTIONS (12)
  - Crohn^s disease [Unknown]
  - Limb injury [Unknown]
  - Skin laceration [Unknown]
  - Diarrhoea [Unknown]
  - Abdominal pain upper [Unknown]
  - Illness [Unknown]
  - Inflammation [Unknown]
  - Inappropriate schedule of product administration [Unknown]
  - Dyspnoea [Unknown]
  - Abdominal distension [Unknown]
  - Flatulence [Unknown]
  - Headache [Unknown]

NARRATIVE: CASE EVENT DATE: 20220509
